FAERS Safety Report 8015246-3 (Version None)
Quarter: 2011Q4

REPORT INFORMATION
  Report Type: 
  Country: None (occurrence: None)
  Receive Date: 20111230
  Receipt Date: 20111220
  Transmission Date: 20120403
  Serious: No
  Sender: FDA-Public Use
  Company Number: US-BIOGENIDEC-2011BI048012

PATIENT
  Age: 48 Year
  Sex: Male

DRUGS (1)
  1. AVONEX [Suspect]
     Indication: MULTIPLE SCLEROSIS
     Route: 030
     Dates: start: 20081206

REACTIONS (9)
  - PARAESTHESIA [None]
  - FALL [None]
  - PAIN IN EXTREMITY [None]
  - PAIN [None]
  - HYPOAESTHESIA [None]
  - BALANCE DISORDER [None]
  - ANGER [None]
  - BLOOD URINE PRESENT [None]
  - DEPRESSED MOOD [None]
